FAERS Safety Report 18047596 (Version 2)
Quarter: 2020Q3

REPORT INFORMATION
  Report Type: Spontaneous
  Country: RU (occurrence: RU)
  Receive Date: 20200721
  Receipt Date: 20200810
  Transmission Date: 20201103
  Serious: Yes (Other)
  Sender: FDA-Public Use
  Company Number: RU-SUN PHARMACEUTICAL INDUSTRIES LTD-2020R1-253640

PATIENT
  Age: 17 Year
  Sex: Male
  Weight: 74 kg

DRUGS (1)
  1. SOTRET [Suspect]
     Active Substance: ISOTRETINOIN
     Indication: ACNE
     Dosage: 30 MILLIGRAM, DAILY
     Route: 048
     Dates: start: 201912, end: 20200727

REACTIONS (1)
  - Blood creatinine increased [Recovered/Resolved]
